FAERS Safety Report 5590323-5 (Version None)
Quarter: 2007Q4

REPORT INFORMATION
  Report Type: 
  Country: None (occurrence: None)
  Receive Date: 20071214
  Receipt Date: 20070731
  Transmission Date: 20080405
  Serious: Yes (Other)
  Sender: FDA-Public Use
  Company Number: 2007063144

PATIENT
  Sex: Female
  Weight: 48.5 kg

DRUGS (4)
  1. XANAX [Suspect]
     Indication: INSOMNIA
     Dates: start: 20030101
  2. XANAX [Suspect]
     Indication: STRESS
     Dates: start: 20030101
  3. ANTI-ASTHMATICS (ANTI-ASTHMATICS) [Concomitant]
  4. ANTICOAGULANTS (ANTITHROMBOTIC AGENTS) [Concomitant]

REACTIONS (3)
  - ABNORMAL DREAMS [None]
  - HALLUCINATION [None]
  - HALLUCINATION, AUDITORY [None]
